FAERS Safety Report 7481611-6 (Version None)
Quarter: 2011Q2

REPORT INFORMATION
  Report Type: 
  Country: None (occurrence: None)
  Receive Date: 20110516
  Receipt Date: 20101014
  Transmission Date: 20111010
  Serious: Yes (Other)
  Sender: FDA-Public Use
  Company Number: US-ROCHE-734160

PATIENT

DRUGS (1)
  1. BONIVA [Suspect]
     Route: 042

REACTIONS (1)
  - NECROSIS [None]
